FAERS Safety Report 6347201-3 (Version None)
Quarter: 2009Q3

REPORT INFORMATION
  Report Type: 
  Country: None (occurrence: None)
  Receive Date: 20090910
  Receipt Date: 20090902
  Transmission Date: 20100115
  Serious: Yes (Other)
  Sender: FDA-Public Use
  Company Number: PHHY2009SI37244

PATIENT
  Age: 80 Year
  Sex: Female

DRUGS (1)
  1. EXELON [Suspect]
     Indication: DEMENTIA ALZHEIMER'S TYPE
     Dosage: 2 X 3 MG DAILY
     Dates: start: 20090510

REACTIONS (3)
  - BRADYCARDIA [None]
  - CARDIAC ARREST [None]
  - NAUSEA [None]
